FAERS Safety Report 5736944-8 (Version None)
Quarter: 2008Q2

REPORT INFORMATION
  Report Type: 
  Country: None (occurrence: None)
  Receive Date: 20080509
  Receipt Date: 20080424
  Transmission Date: 20081010
  Serious: Yes (Life-Threatening)
  Sender: FDA-Public Use
  Company Number: GXKR2008PL04015

PATIENT
  Age: 17 Year
  Sex: Female

DRUGS (4)
  1. VERAPAMIL [Suspect]
     Dosage: 2400 MG, ORAL
     Route: 048
  2. IBUPROFEN [Suspect]
     Dosage: 4400 MG, ORAL
     Route: 048
  3. METOPROLOL SUCCINATE [Suspect]
     Dosage: 500 MG, ORAL
     Route: 048
  4. AMLODIPINE [Suspect]
     Dosage: 290 MG, ORAL
     Route: 048

REACTIONS (24)
  - ANURIA [None]
  - BLOOD CREATININE INCREASED [None]
  - BLOOD GLUCOSE DECREASED [None]
  - BLOOD UREA INCREASED [None]
  - BRADYCARDIA [None]
  - CARDIOGENIC SHOCK [None]
  - GENERAL PHYSICAL HEALTH DETERIORATION [None]
  - GLUCOSE URINE PRESENT [None]
  - HEPATIC FUNCTION ABNORMAL [None]
  - HYPERHIDROSIS [None]
  - HYPERKALAEMIA [None]
  - HYPOPERFUSION [None]
  - HYPOTENSION [None]
  - HYPOVENTILATION [None]
  - INTENTIONAL OVERDOSE [None]
  - METABOLIC ACIDOSIS [None]
  - MIOSIS [None]
  - PERIPHERAL COLDNESS [None]
  - POST PROCEDURAL COMPLICATION [None]
  - PROTEIN URINE PRESENT [None]
  - PUPILLARY REFLEX IMPAIRED [None]
  - SUICIDE ATTEMPT [None]
  - VENTRICULAR FIBRILLATION [None]
  - VITAL FUNCTIONS ABNORMAL [None]
